FAERS Safety Report 8876036 (Version 1)
Quarter: 2012Q4

REPORT INFORMATION
  Report Type: 
  Country: ES (occurrence: ES)
  Receive Date: 20121030
  Receipt Date: 20121030
  Transmission Date: 20130627
  Serious: Yes (Hospitalization)
  Sender: FDA-Public Use
  Company Number: ES-ELI_LILLY_AND_COMPANY-ES201210005798

PATIENT
  Sex: Female

DRUGS (1)
  1. FORSTEO [Suspect]
     Indication: BACK PAIN
     Dosage: UNK UNK, unknown
     Route: 065
     Dates: start: 20120929

REACTIONS (4)
  - Back pain [Unknown]
  - Anaemia [Unknown]
  - Blood glucose decreased [Unknown]
  - Off label use [Unknown]
